FAERS Safety Report 8363802-5 (Version None)
Quarter: 2012Q2

REPORT INFORMATION
  Report Type: 
  Country: None (occurrence: None)
  Receive Date: 20120515
  Receipt Date: 20120515
  Transmission Date: 20120825
  Serious: Yes (Life-Threatening, Hospitalization)
  Sender: FDA-Public Use
  Company Number: None

PATIENT
  Age: 71 Year
  Sex: Male
  Weight: 91.4 kg

DRUGS (1)
  1. WARFARIN SODIUM [Suspect]
     Indication: PULMONARY EMBOLISM
     Dosage: 6 MG PM PO
     Route: 048
     Dates: start: 20120131

REACTIONS (10)
  - DIARRHOEA [None]
  - PNEUMONIA [None]
  - RETROPERITONEAL HAEMATOMA [None]
  - URINARY TRACT INFECTION [None]
  - HAEMORRHAGE [None]
  - VOMITING [None]
  - HAEMATOCRIT DECREASED [None]
  - NAUSEA [None]
  - HAEMOGLOBIN DECREASED [None]
  - ILEUS [None]
